FAERS Safety Report 8088596-2 (Version None)
Quarter: 2012Q1

REPORT INFORMATION
  Report Type: 
  Country: None (occurrence: None)
  Receive Date: 20120128
  Receipt Date: 20110503
  Transmission Date: 20120608
  Serious: No
  Sender: FDA-Public Use
  Company Number: US-ABBOTT-11P-163-0723215-00

PATIENT
  Age: 25 Year
  Sex: Male

DRUGS (2)
  1. HUMIRA [Suspect]
     Indication: PSORIASIS
     Dates: start: 20090101, end: 20100701
  2. HUMIRA [Suspect]
     Dates: start: 20110101, end: 20110502

REACTIONS (3)
  - ILL-DEFINED DISORDER [None]
  - EAR INFECTION [None]
  - OROPHARYNGEAL PAIN [None]
